FAERS Safety Report 9584763 (Version 1)
Quarter: 2013Q4

REPORT INFORMATION
  Report Type: Spontaneous
  Country: US (occurrence: US)
  Receive Date: 20131002
  Receipt Date: 20131002
  Transmission Date: 20140711
  Serious: No
  Sender: FDA-Public Use
  Company Number: US-AMGEN-USASP2013055978

PATIENT
  Age: 34 Year
  Sex: Male
  Weight: 95.24 kg

DRUGS (2)
  1. ENBREL [Suspect]
     Indication: PRODUCT USED FOR UNKNOWN INDICATION
     Dosage: 50 MG, QWK
     Route: 058
  2. MINOCYCLINE [Concomitant]
     Dosage: 50 MG, UNK

REACTIONS (4)
  - Abdominal pain upper [Unknown]
  - Cold sweat [Unknown]
  - Pyrexia [Unknown]
  - Flatulence [Unknown]
